FAERS Safety Report 25868913 (Version 2)
Quarter: 2025Q4

REPORT INFORMATION
  Report Type: Report from Study
  Country: EU (occurrence: EU)
  Receive Date: 20251001
  Receipt Date: 20251105
  Transmission Date: 20260118
  Serious: Yes (Other)
  Sender: NOVARTIS
  Company Number: EU-002147023-NVSC2025EE144644

PATIENT
  Age: 55 Year
  Sex: Female

DRUGS (7)
  1. PIQRAY [Suspect]
     Active Substance: ALPELISIB
     Indication: Breast cancer
     Dosage: 300 MG, QD (OTHER STRENGTH: 300MG) (FILM-COATED TABLET)
     Route: 048
     Dates: start: 20250807, end: 20250821
  2. PIQRAY [Suspect]
     Active Substance: ALPELISIB
     Indication: Invasive lobular breast carcinoma
     Dosage: 200 MG, QD (FILM-COATED TABLET) (200 MG TABLETS FROM A BOTTLE LOT NO. 137571 AND 50 MG TABLETS FROM
     Route: 048
     Dates: start: 20250916, end: 20250916
  3. PIQRAY [Suspect]
     Active Substance: ALPELISIB
     Indication: Metastases to peritoneum
  4. PIQRAY [Suspect]
     Active Substance: ALPELISIB
     Indication: PIK3CA-activated mutation
  5. PIQRAY [Suspect]
     Active Substance: ALPELISIB
     Indication: Breast cancer metastatic
  6. METOCLOPRAMIDE [Concomitant]
     Active Substance: METOCLOPRAMIDE
     Indication: Product used for unknown indication
     Dosage: 10 MG (X3)
     Route: 065
     Dates: start: 20250916, end: 20250917
  7. GRANISETRON [Concomitant]
     Active Substance: GRANISETRON
     Indication: Product used for unknown indication
     Dosage: 1 MG (X2)
     Route: 065
     Dates: start: 20250916, end: 20250917

REACTIONS (16)
  - Diarrhoea [Recovered/Resolved]
  - Rash macular [Recovered/Resolved]
  - Oral mucosal blistering [Recovered/Resolved]
  - Malaise [Recovered/Resolved]
  - Asthenia [Recovered/Resolved]
  - Quality of life decreased [Recovered/Resolved]
  - Abdominal pain upper [Recovered/Resolved]
  - Nausea [Recovered/Resolved]
  - Vomiting [Recovered/Resolved]
  - Diarrhoea [Recovered/Resolved]
  - Arthralgia [Recovered/Resolved]
  - Pain in extremity [Recovered/Resolved]
  - Erythema [Recovered/Resolved]
  - Feeling hot [Recovered/Resolved]
  - Skin exfoliation [Recovered/Resolved]
  - Dry skin [Recovering/Resolving]

NARRATIVE: CASE EVENT DATE: 20250807
